FAERS Safety Report 23772388 (Version 1)
Quarter: 2024Q2

REPORT INFORMATION
  Report Type: Spontaneous
  Country: LT (occurrence: None)
  Receive Date: 20240423
  Receipt Date: 20240423
  Transmission Date: 20240716
  Serious: Yes (Other)
  Sender: FDA-Public Use
  Company Number: LT-ROCHE-3546390

PATIENT
  Sex: Female

DRUGS (2)
  1. VABYSMO [Suspect]
     Active Substance: FARICIMAB\FARICIMAB-SVOA
     Indication: Macular degeneration
     Dosage: 120 MG/ML
     Route: 065
     Dates: start: 20240313
  2. VABYSMO [Suspect]
     Active Substance: FARICIMAB\FARICIMAB-SVOA
     Route: 065
     Dates: start: 20240411

REACTIONS (2)
  - Eye haematoma [Unknown]
  - Eye pain [Unknown]
